FAERS Safety Report 21410434 (Version 1)
Quarter: 2022Q4

REPORT INFORMATION
  Report Type: Spontaneous
  Country: US (occurrence: None)
  Receive Date: 20221003
  Receipt Date: 20221003
  Transmission Date: 20230113
  Serious: No
  Sender: FDA-Public Use
  Company Number: None

PATIENT
  Age: 47 Year
  Sex: Female
  Weight: 82.83 kg

DRUGS (14)
  1. LETROZOLE [Suspect]
     Active Substance: LETROZOLE
     Indication: Breast cancer
     Dosage: FREQUENCY : DAILY;?
     Route: 048
     Dates: start: 202110
  2. BUSPIRONE HCI [Concomitant]
  3. CELEXA [Concomitant]
  4. CERTIZINE [Concomitant]
  5. MAGNESIUM [Concomitant]
  6. DULOXETINE HCI [Concomitant]
  7. ELIQUIS [Concomitant]
  8. GABAPENTIN [Concomitant]
  9. HYDROCODONE-ACETAMINOPHEN [Concomitant]
  10. LINZESS [Concomitant]
  11. MAGNESIUM [Concomitant]
  12. METOPROLOL TARTRATE [Concomitant]
  13. PROTONIX [Concomitant]
  14. ZOFRAN [Concomitant]

REACTIONS (1)
  - Metastasis [None]
